FAERS Safety Report 19180766 (Version 2)
Quarter: 2021Q2

REPORT INFORMATION
  Report Type: Spontaneous
  Country: GB (occurrence: GB)
  Receive Date: 20210426
  Receipt Date: 20210604
  Transmission Date: 20210717
  Serious: Yes (Other)
  Sender: FDA-Public Use
  Company Number: GB-AMGEN-GBRNI2021059740

PATIENT
  Age: 58 Year
  Sex: Female

DRUGS (14)
  1. DOCETAXEL. [Suspect]
     Active Substance: DOCETAXEL
     Indication: HER2 POSITIVE BREAST CANCER
     Dosage: 148 MILLIGRAM, Q3WK
     Route: 042
     Dates: start: 20161114, end: 20161114
  2. DOCETAXEL. [Suspect]
     Active Substance: DOCETAXEL
     Dosage: 108 MILLIGRAM, Q3WK
     Route: 042
     Dates: start: 20161206, end: 20170126
  3. DOCETAXEL. [Suspect]
     Active Substance: DOCETAXEL
     Dosage: 88 MILLIGRAM, Q3WK
     Route: 042
     Dates: start: 20170126, end: 20180216
  4. PERTUZUMAB. [Suspect]
     Active Substance: PERTUZUMAB
     Indication: HER2 POSITIVE BREAST CANCER
     Dosage: 840 MILLIGRAM, Q3WK (LOADING DOSE FIRST CYCLE)
     Route: 042
     Dates: start: 20161115, end: 20161115
  5. TRASTUZUMAB. [Suspect]
     Active Substance: TRASTUZUMAB
     Indication: HER2 POSITIVE BREAST CANCER
     Dosage: 714 MILLIGRAM, Q3WK (LOADING DOSE, FIRST CYCLE)
     Route: 042
     Dates: start: 20161115, end: 20161115
  6. CAPECITABINE. [Suspect]
     Active Substance: CAPECITABINE
     Dosage: 1950 MILLIGRAM, BID
     Route: 048
     Dates: start: 20180426, end: 20190709
  7. CAPECITABINE. [Suspect]
     Active Substance: CAPECITABINE
     Dosage: 1800 MILLIGRAM, BID
     Route: 048
     Dates: start: 20190730, end: 20200728
  8. SARS?COV?2 VACCINE [Concomitant]
     Dosage: 0.3 MILLILITER
     Route: 030
     Dates: start: 20210203, end: 20210203
  9. TRASTUZUMAB. [Suspect]
     Active Substance: TRASTUZUMAB
     Dosage: 600 MILLIGRAM, Q3WK
     Route: 058
     Dates: start: 20180405
  10. CAPECITABINE. [Suspect]
     Active Substance: CAPECITABINE
     Indication: HER2 POSITIVE BREAST CANCER
     Dosage: 2500 MILLIGRAM, BID
     Route: 048
     Dates: start: 20180405, end: 20180405
  11. PERTUZUMAB. [Suspect]
     Active Substance: PERTUZUMAB
     Dosage: 420 MILLIGRAM, Q3WK
     Route: 042
     Dates: start: 20161206, end: 20180208
  12. TRASTUZUMAB EMTANSINE [Suspect]
     Active Substance: ADO-TRASTUZUMAB EMTANSINE
     Indication: HER2 POSITIVE BREAST CANCER
     Dosage: 320 MILLIGRAM, Q3WK
     Route: 042
     Dates: start: 20200824
  13. LISINOPRIL. [Concomitant]
     Active Substance: LISINOPRIL
     Indication: HYPERTENSION
     Dosage: 2.5 MILLIGRAM, QD
     Route: 048
     Dates: start: 20200928
  14. TRASTUZUMAB. [Suspect]
     Active Substance: TRASTUZUMAB
     Dosage: 525 MILLIGRAM, Q3WK
     Route: 042
     Dates: start: 20161206, end: 20180208

REACTIONS (4)
  - Off label use [Unknown]
  - Urinary tract infection [Recovered/Resolved]
  - Lower respiratory tract infection [Recovered/Resolved]
  - Vulvovaginal candidiasis [Recovered/Resolved]

NARRATIVE: CASE EVENT DATE: 20190416
